FAERS Safety Report 21803866 (Version 1)
Quarter: 2023Q1

REPORT INFORMATION
  Report Type: Spontaneous
  Country: US (occurrence: US)
  Receive Date: 20230102
  Receipt Date: 20230102
  Transmission Date: 20230418
  Serious: No
  Sender: FDA-Public Use
  Company Number: US-BRISTOL-MYERS SQUIBB COMPANY-2022-160941

PATIENT
  Age: 53 Year
  Sex: Female

DRUGS (2)
  1. INREBIC [Suspect]
     Active Substance: FEDRATINIB HYDROCHLORIDE
     Indication: Myeloproliferative neoplasm
     Route: 048
  2. INREBIC [Suspect]
     Active Substance: FEDRATINIB HYDROCHLORIDE
     Indication: Myelofibrosis

REACTIONS (2)
  - Rash [Recovered/Resolved]
  - Acne [Recovered/Resolved]
